FAERS Safety Report 18247924 (Version 2)
Quarter: 2020Q4

REPORT INFORMATION
  Report Type: Spontaneous
  Country: FR (occurrence: FR)
  Receive Date: 20200909
  Receipt Date: 20201216
  Transmission Date: 20210113
  Serious: Yes (Hospitalization)
  Sender: FDA-Public Use
  Company Number: FR-MYLANLABS-2020M1076401

PATIENT
  Age: 81 Year
  Sex: Female
  Weight: 38 kg

DRUGS (4)
  1. ATORVASTATINE MYLAN 80 MG, COMPRIM? PELLICUL? [Suspect]
     Active Substance: ATORVASTATIN
     Indication: MYOCARDIAL ISCHAEMIA
     Dosage: 80 MILLIGRAM, QD
     Route: 048
     Dates: start: 202005, end: 20200617
  2. QUESTRAN [Suspect]
     Active Substance: CHOLESTYRAMINE
     Indication: DIARRHOEA
     Dosage: 3 CP/JOUR (CP/DAY)
     Route: 048
     Dates: start: 202004, end: 20200617
  3. ACIDE FOLIQUE MYLAN 5 MG, COMPRIME [Suspect]
     Active Substance: FOLIC ACID
     Indication: ANAEMIA FOLATE DEFICIENCY
     Dosage: 5 MILLIGRAM, QD
     Route: 048
     Dates: start: 202004, end: 20200617
  4. AMLODIPINE MYLAN 10 MG, G?LULE [Suspect]
     Active Substance: AMLODIPINE BESYLATE
     Indication: HYPERTENSION
     Dosage: 10 MILLIGRAM, QD
     Route: 048
     Dates: start: 202004, end: 20200617

REACTIONS (2)
  - Cholestasis [Recovered/Resolved]
  - Hepatocellular injury [Recovered/Resolved]

NARRATIVE: CASE EVENT DATE: 20200618
